FAERS Safety Report 16725922 (Version 3)
Quarter: 2019Q4

REPORT INFORMATION
  Report Type: Spontaneous
  Country: CA (occurrence: CA)
  Receive Date: 20190821
  Receipt Date: 20191017
  Transmission Date: 20200122
  Serious: Yes (Disabling, Other)
  Sender: FDA-Public Use
  Company Number: CA-TEVA-2019-CA-1090156

PATIENT
  Age: 77 Year
  Sex: Female
  Weight: 57 kg

DRUGS (5)
  1. TEVA RAMIPRIL 5MG [Suspect]
     Active Substance: RAMIPRIL
     Indication: BLOOD PRESSURE MEASUREMENT
     Route: 048
     Dates: start: 201908
  2. SYNTHROID [Concomitant]
     Active Substance: LEVOTHYROXINE SODIUM
     Dosage: 1 DOSAGE FORMS DAILY;
  3. SYNTHROID [Concomitant]
     Active Substance: LEVOTHYROXINE SODIUM
     Dosage: 1 DOSAGE FORMS DAILY;
  4. TEVA-ATORVASTATIN [Suspect]
     Active Substance: ATORVASTATIN
     Indication: HYPERCHOLESTEROLAEMIA
     Route: 048
     Dates: start: 2016, end: 201811
  5. TEVA-ATORVASTATIN [Suspect]
     Active Substance: ATORVASTATIN
     Indication: BLOOD CHOLESTEROL

REACTIONS (30)
  - Intraocular pressure increased [Not Recovered/Not Resolved]
  - Myalgia [Unknown]
  - Nail disorder [Unknown]
  - Dyspnoea [Not Recovered/Not Resolved]
  - Dizziness [Recovering/Resolving]
  - Palpitations [Not Recovered/Not Resolved]
  - Visual impairment [Unknown]
  - Nervousness [Unknown]
  - Balance disorder [Recovering/Resolving]
  - Pollakiuria [Recovering/Resolving]
  - Urine odour abnormal [Unknown]
  - Fatigue [Unknown]
  - Asthenia [Unknown]
  - Blood pressure increased [Not Recovered/Not Resolved]
  - Sleep deficit [Not Recovered/Not Resolved]
  - Night sweats [Unknown]
  - Sleep disorder [Unknown]
  - Abdominal pain upper [Unknown]
  - Nausea [Recovered/Resolved]
  - Glaucoma [Unknown]
  - Sensory loss [Unknown]
  - Pain in extremity [Not Recovered/Not Resolved]
  - Foot fracture [Unknown]
  - Pain [Not Recovered/Not Resolved]
  - Peripheral swelling [Unknown]
  - Eye swelling [Unknown]
  - Generalised oedema [Unknown]
  - Muscular weakness [Unknown]
  - Pain [Unknown]
  - Fall [Unknown]

NARRATIVE: CASE EVENT DATE: 2017
